FAERS Safety Report 24781966 (Version 1)
Quarter: 2024Q4

REPORT INFORMATION
  Report Type: Spontaneous
  Country: CA (occurrence: CA)
  Receive Date: 20241227
  Receipt Date: 20241227
  Transmission Date: 20250115
  Serious: Yes (Other)
  Sender: CSL BEHRING
  Company Number: CA-BEH-2024190067

PATIENT
  Age: 15 Year
  Sex: Female

DRUGS (1)
  1. PRIVIGEN [Suspect]
     Active Substance: HUMAN IMMUNOGLOBULIN G
     Dosage: 400 ML
     Route: 065
     Dates: start: 20241217, end: 20241217

REACTIONS (10)
  - Anaphylactic reaction [Unknown]
  - Anaphylactoid reaction [Unknown]
  - Headache [Unknown]
  - Dyspnoea [Unknown]
  - Cough [Unknown]
  - Tachypnoea [Unknown]
  - Wheezing [Unknown]
  - Stridor [Unknown]
  - Pyrexia [Unknown]
  - Hypersensitivity [Unknown]

NARRATIVE: CASE EVENT DATE: 20241217
